FAERS Safety Report 5098126-5 (Version None)
Quarter: 2006Q3

REPORT INFORMATION
  Report Type: 
  Country: None (occurrence: None)
  Receive Date: 20060906
  Receipt Date: 20060420
  Transmission Date: 20061208
  Serious: No
  Sender: FDA-Public Use
  Company Number: US-GLAXOSMITHKLINE-A0602653A

PATIENT
  Age: 94 Year
  Sex: Female

DRUGS (13)
  1. REQUIP [Suspect]
     Indication: RESTLESS LEGS SYNDROME
     Dosage: .25MG AT NIGHT
     Route: 048
     Dates: start: 20060420
  2. COREG [Concomitant]
  3. NITROFURANTOIN [Concomitant]
  4. PROCARDIA XL [Concomitant]
  5. PLAVIX [Concomitant]
  6. LASIX [Concomitant]
  7. PLETAL [Concomitant]
  8. PROTONIX [Concomitant]
  9. ZOCOR [Concomitant]
  10. KLOR-CON [Concomitant]
  11. PAXIL [Concomitant]
  12. SYNTHROID [Concomitant]
  13. SEROQUEL [Concomitant]

REACTIONS (5)
  - ABNORMAL BEHAVIOUR [None]
  - DYSKINESIA [None]
  - EATING DISORDER [None]
  - MUSCLE TWITCHING [None]
  - RESTLESS LEGS SYNDROME [None]
